FAERS Safety Report 5277278-8 (Version None)
Quarter: 2007Q1

REPORT INFORMATION
  Report Type: 
  Country: None (occurrence: None)
  Receive Date: 20061213
  Receipt Date: 20060711
  Transmission Date: 20070707
  Serious: No
  Sender: FDA-Public Use
  Company Number: 2006UW14296

PATIENT
  Age: 61 Year
  Sex: Female
  Weight: 74.842 kg

DRUGS (4)
  1. SEROQUEL [Suspect]
     Indication: DEPRESSION
  2. SEROQUEL [Suspect]
     Indication: SLEEP DISORDER
  3. THYROID TAB [Concomitant]
  4. CHOLESTEROL MEDICATION [Concomitant]

REACTIONS (7)
  - BLOOD TRIGLYCERIDES INCREASED [None]
  - DIABETES MELLITUS [None]
  - DRUG INEFFECTIVE [None]
  - HYPERHIDROSIS [None]
  - PANCREATITIS [None]
  - THYROID FUNCTION TEST ABNORMAL [None]
  - WEIGHT FLUCTUATION [None]
